FAERS Safety Report 9795788 (Version 3)
Quarter: 2014Q2

REPORT INFORMATION
  Report Type: Spontaneous
  Country: US (occurrence: US)
  Receive Date: 20140103
  Receipt Date: 20140522
  Transmission Date: 20141212
  Serious: Yes (Hospitalization)
  Sender: FDA-Public Use
  Company Number: US-BAYER-2013-158638

PATIENT
  Age: 36 Year
  Sex: Female
  Weight: 77.1 kg

DRUGS (17)
  1. MIRENA [Suspect]
     Indication: CONTRACEPTION
     Dosage: 20 MCG/24HR, CONT
     Route: 015
     Dates: start: 20080818, end: 20080829
  2. AMBIEN [Concomitant]
     Route: 048
  3. CERVIDIL [DINOPROSTONE] [Concomitant]
     Dosage: 10 MG, UNK
     Route: 067
  4. PITOCIN [Concomitant]
  5. MOTRIN [Concomitant]
     Dosage: 800 MG, UNK
     Route: 048
  6. PERCOCET [Concomitant]
     Dosage: 5/325
     Route: 048
  7. LANSINOH [LANOLIN] [Concomitant]
     Route: 061
  8. STADOL [Concomitant]
     Dosage: 1 MG, UNK
     Route: 042
  9. STADOL [Concomitant]
     Dosage: 2 MG, UNK
     Route: 042
  10. ROPIVACAINE [Concomitant]
     Dosage: 0.2 UNK, UNK
  11. HYDROCORTISONE [Concomitant]
     Dosage: 2.5 UNK, UNK
  12. TYLENOL [PARACETAMOL] [Concomitant]
  13. ZOLOFT [Concomitant]
     Dosage: 50 MG, UNK
  14. SILVER NITRATE [Concomitant]
  15. ULTRAM [Concomitant]
     Dosage: 50 MG, UNK
     Route: 048
  16. PRENATAL W/FERRUM FUMARATE+FOLIC ACID [Concomitant]
     Dosage: UNK, QD
     Route: 048
  17. TRICHLOROACETIC ACID [Concomitant]
     Indication: PAPILLOMA VIRAL INFECTION

REACTIONS (5)
  - Uterine perforation [None]
  - Medical device discomfort [None]
  - Medical device pain [None]
  - Injury [None]
  - Device dislocation [None]
